FAERS Safety Report 7402571-X (Version None)
Quarter: 2011Q2

REPORT INFORMATION
  Report Type: 
  Country: None (occurrence: None)
  Receive Date: 20110408
  Receipt Date: 20110329
  Transmission Date: 20111010
  Serious: Yes (Hospitalization)
  Sender: FDA-Public Use
  Company Number: BR-MEDIMMUNE-MEDI-0011590

PATIENT
  Sex: Male
  Weight: 8 kg

DRUGS (8)
  1. SYNAGIS [Suspect]
  2. BECLOMETASONE DIPROPIONATE [Concomitant]
     Route: 048
     Dates: start: 20090627
  3. PHENOBARBITAL SRT [Concomitant]
     Route: 048
     Dates: start: 20090801
  4. UNKNOWN MEDICATION [Concomitant]
     Route: 055
  5. SYNAGIS [Suspect]
     Indication: BRONCHOPULMONARY DYSPLASIA
     Route: 030
     Dates: start: 20100601
  6. ALBUTEROL SULFATE AUTOHALER [Concomitant]
     Route: 048
  7. FENOTEROL [Concomitant]
     Route: 055
  8. IPRATROPIUM BROMIDE [Concomitant]
     Route: 055

REACTIONS (8)
  - NASOPHARYNGITIS [None]
  - FATIGUE [None]
  - WEIGHT DECREASED [None]
  - INFLUENZA [None]
  - COUGH [None]
  - BRONCHOPULMONARY DYSPLASIA [None]
  - SNEEZING [None]
  - RHINITIS [None]
